FAERS Safety Report 6196428-2 (Version None)
Quarter: 2009Q2

REPORT INFORMATION
  Report Type: 
  Country: None (occurrence: None)
  Receive Date: 20090518
  Receipt Date: 20090513
  Transmission Date: 20091009
  Serious: Yes (Life-Threatening, Hospitalization)
  Sender: FDA-Public Use
  Company Number: GXKR2009DE05734

PATIENT
  Age: 51 Year
  Sex: Female
  Weight: 92 kg

DRUGS (14)
  1. TORASEMIDE               (TORASEMIDE) TABLET [Suspect]
     Indication: CARDIAC FAILURE
     Dosage: ORAL
     Route: 048
     Dates: start: 20080701, end: 20080903
  2. PREDNISOLONE TAB [Suspect]
     Indication: HYPEREOSINOPHILIC SYNDROME
     Dosage: 100 MG TO 30 MG DAILY, ORAL
     Route: 048
     Dates: start: 20080301
  3. SALBUTAMOL        (SALBUTAMOL) UNKNOWN [Suspect]
     Indication: ASTHMA
     Dosage: INHALATION
     Route: 055
     Dates: start: 20080201
  4. AQUAPHOR                  (XIPAMIDE) 20MG [Suspect]
     Indication: CARDIAC FAILURE
     Dosage: 20 MG, QD, ORAL
     Route: 048
     Dates: start: 20080301, end: 20080903
  5. ALDACTONE [Concomitant]
  6. ROCALTROL [Concomitant]
  7. SYMBICORT [Concomitant]
  8. VIANI          (FLUTICASONE PROPIONATE, SALMETEROL XINAFOATE) [Concomitant]
  9. ASPIRIN [Concomitant]
  10. BISOPROLOL FUMARATE [Concomitant]
  11. FALITHROM                (PHENPROCOUMON) [Concomitant]
  12. PANTOPRAZOLE SODIUM [Concomitant]
  13. CALCILAC KT        (CALCIUM CARBONATE, COLECALCIFEROL) [Concomitant]
  14. MAGNESIUM VERLA TABLET      (MAGNESIUM HYDROGEN ASPARTATE) [Concomitant]

REACTIONS (3)
  - BLOOD POTASSIUM DECREASED [None]
  - BLOOD SODIUM DECREASED [None]
  - METABOLIC ALKALOSIS [None]
